FAERS Safety Report 9314706 (Version 2)
Quarter: 2013Q2

REPORT INFORMATION
  Report Type: Spontaneous
  Country: IT (occurrence: IT)
  Receive Date: 20130529
  Receipt Date: 20130605
  Transmission Date: 20140414
  Serious: Yes (Hospitalization)
  Sender: FDA-Public Use
  Company Number: IT-BRISTOL-MYERS SQUIBB COMPANY-18945956

PATIENT
  Age: 82 Year
  Sex: Female
  Weight: 60 kg

DRUGS (9)
  1. COUMADIN [Suspect]
     Indication: ATRIAL FIBRILLATION
     Dates: start: 2008
  2. ISOSORBIDE MONONITRATE [Concomitant]
     Route: 048
  3. DILZENE [Concomitant]
     Route: 048
  4. JANUVIA [Concomitant]
     Route: 048
  5. LANOXIN [Concomitant]
     Dosage: 0.125 MG TAB
     Route: 048
  6. CATAPRESAN [Concomitant]
     Dosage: 150 MCG TAB
     Route: 048
  7. AMARYL [Concomitant]
     Route: 048
  8. OLPRESS [Concomitant]
     Route: 048
  9. COTAREG [Concomitant]
     Route: 048

REACTIONS (1)
  - Myocardial ischaemia [Unknown]
